FAERS Safety Report 5361688-4 (Version None)
Quarter: 2007Q2

REPORT INFORMATION
  Report Type: 
  Country: None (occurrence: None)
  Receive Date: 20070530
  Receipt Date: 20070111
  Transmission Date: 20071010
  Serious: No
  Sender: FDA-Public Use
  Company Number: 2007PV028274

PATIENT
  Age: 57 Year
  Sex: Female
  Weight: 81.6475 kg

DRUGS (5)
  1. BYETTA [Suspect]
     Indication: GLUCOSE TOLERANCE IMPAIRED
     Dosage: 5 MCG;QAM;SC;  10 MCG;QPM;SC;  10;5 MCG;BID;SC
     Route: 058
     Dates: start: 20061101, end: 20061201
  2. BYETTA [Suspect]
     Indication: GLUCOSE TOLERANCE IMPAIRED
     Dosage: 5 MCG;QAM;SC;  10 MCG;QPM;SC;  10;5 MCG;BID;SC
     Route: 058
     Dates: start: 20061201, end: 20061201
  3. BYETTA [Suspect]
     Indication: GLUCOSE TOLERANCE IMPAIRED
     Dosage: 5 MCG;QAM;SC;  10 MCG;QPM;SC;  10;5 MCG;BID;SC
     Route: 058
     Dates: start: 20061201
  4. BYETTA [Suspect]
     Indication: GLUCOSE TOLERANCE IMPAIRED
     Dosage: 5 MCG;QAM;SC;  10 MCG;QPM;SC;  10;5 MCG;BID;SC
     Route: 058
     Dates: start: 20061201
  5. BYETTA [Suspect]

REACTIONS (6)
  - CONSTIPATION [None]
  - DECREASED APPETITE [None]
  - DRY MOUTH [None]
  - EARLY SATIETY [None]
  - FEELING JITTERY [None]
  - INITIAL INSOMNIA [None]
